FAERS Safety Report 18554742 (Version 1)
Quarter: 2020Q4

REPORT INFORMATION
  Report Type: Spontaneous
  Country: US (occurrence: US)
  Receive Date: 20201127
  Receipt Date: 20201127
  Transmission Date: 20210114
  Serious: Yes (Other)
  Sender: FDA-Public Use
  Company Number: US-ASTRAZENECA-2020SF56673

PATIENT
  Sex: Male
  Weight: 83.9 kg

DRUGS (3)
  1. SYMBICORT [Suspect]
     Active Substance: BUDESONIDE\FORMOTEROL FUMARATE DIHYDRATE
     Indication: CHRONIC OBSTRUCTIVE PULMONARY DISEASE
     Dosage: 160/4.5 MCG, INHALATION, 2 PUFFS, TWICE DAILY,
     Route: 055
  2. OXYGEN. [Concomitant]
     Active Substance: OXYGEN
  3. SYMBICORT [Suspect]
     Active Substance: BUDESONIDE\FORMOTEROL FUMARATE DIHYDRATE
     Indication: DYSPNOEA
     Dosage: 160/4.5 MCG, INHALATION, 2 PUFFS, TWICE DAILY,
     Route: 055

REACTIONS (4)
  - Scar [Unknown]
  - Drug ineffective [Unknown]
  - Emphysema [Unknown]
  - Pruritus [Unknown]
